FAERS Safety Report 15392544 (Version 1)
Quarter: 2018Q3

REPORT INFORMATION
  Report Type: Spontaneous
  Country: GB (occurrence: GB)
  Receive Date: 20180917
  Receipt Date: 20180917
  Transmission Date: 20181010
  Serious: Yes (Other)
  Sender: FDA-Public Use
  Company Number: GB-TASMAN PHARMA, INC.-2018TSM00089

PATIENT
  Age: 20 Year
  Sex: Male

DRUGS (6)
  1. CLOZAPINE. [Suspect]
     Active Substance: CLOZAPINE
     Dosage: 150 MG, 2X/DAY
  2. CLOZAPINE. [Suspect]
     Active Substance: CLOZAPINE
     Dosage: 450 MG DAILY DOSE AFTER 9 MONTHS OF 12.5 INCREMENTS
  3. CLOZAPINE. [Suspect]
     Active Substance: CLOZAPINE
     Indication: PSYCHOTIC DISORDER
     Dosage: TRIAL 1
     Route: 065
     Dates: start: 2013, end: 2013
  4. CLOZAPINE. [Suspect]
     Active Substance: CLOZAPINE
     Dosage: UNK
     Route: 065
     Dates: start: 201502
  5. CLOZAPINE. [Suspect]
     Active Substance: CLOZAPINE
     Dosage: 12.5 MG, 1X/DAY (DAILY INCREMENTS
     Route: 065
  6. CLOZAPINE. [Suspect]
     Active Substance: CLOZAPINE
     Dosage: TRIAL 2
     Route: 065
     Dates: start: 2013, end: 2013

REACTIONS (4)
  - Drug withdrawal syndrome [Recovered/Resolved]
  - Pericarditis [Recovered/Resolved]
  - Eosinophilia [Recovered/Resolved]
  - Catatonia [Recovered/Resolved]
